FAERS Safety Report 5032669-5 (Version None)
Quarter: 2006Q2

REPORT INFORMATION
  Report Type: 
  Country: None (occurrence: None)
  Receive Date: 20060620
  Receipt Date: 20060607
  Transmission Date: 20061013
  Serious: Yes (Hospitalization)
  Sender: FDA-Public Use
  Company Number: 2006058459

PATIENT
  Age: 77 Year
  Sex: Male
  Weight: 108.8633 kg

DRUGS (22)
  1. CELEBREX [Suspect]
     Indication: ARTHRITIS
     Dosage: 200 MG (200 MG, 2 IN 1 D), ORAL
     Route: 048
     Dates: start: 20000101
  2. LASIX [Concomitant]
  3. ZESTRIL [Concomitant]
  4. ACETAMINOPHEN [Concomitant]
  5. PSYLLIUM (PSYLLIUM) [Concomitant]
  6. LORTAB [Concomitant]
  7. CENTRUM SILVER (ASCORBIC ACID, CALCIUM, MINERALS NOS, RETINOL, TOCOPHE [Concomitant]
  8. TOPROL-XL [Concomitant]
  9. PLAVIX [Concomitant]
  10. ANUSOL-HC (BALSAM PERU, BENZYL BENZOATE, BISMUTH HYDROXIDE, BISMUTH SU [Concomitant]
  11. PROZAC [Concomitant]
  12. PREVACID [Concomitant]
  13. ANUSOL [Concomitant]
  14. FIBERCON (POLYCARBOPHIL CALCIUM) [Concomitant]
  15. MULTIVITAMIN [Concomitant]
  16. ULTRACET [Concomitant]
  17. LIBRAX [Concomitant]
  18. ZYRTEC [Concomitant]
  19. GUAIFENESIN (GUAIFENESIN) [Concomitant]
  20. MAALOX (ALUMINUM HYDROXIDE GEL, MAGNESIUM HYDROXIDE) [Concomitant]
  21. MILK OF MAGNESIA TAB [Concomitant]
  22. COLACE (DOCUSATE SODIUM) [Concomitant]

REACTIONS (7)
  - ABDOMINAL DISCOMFORT [None]
  - AMNESIA [None]
  - CHEST PAIN [None]
  - HEAD INJURY [None]
  - LOSS OF CONSCIOUSNESS [None]
  - OPEN WOUND [None]
  - TRANSIENT ISCHAEMIC ATTACK [None]
